FAERS Safety Report 6653170-9 (Version None)
Quarter: 2010Q1

REPORT INFORMATION
  Report Type: 
  Country: None (occurrence: None)
  Receive Date: 20100326
  Receipt Date: 20100324
  Transmission Date: 20100710
  Serious: Yes (Death, Hospitalization, Other)
  Sender: FDA-Public Use
  Company Number: PHEH2008US08657

PATIENT
  Sex: Female

DRUGS (28)
  1. ZOMETA [Suspect]
     Dosage: UNK
  2. FEMARA [Concomitant]
     Dosage: 2.5 MG TABLETS
  3. TAMOXIFEN CITRATE [Concomitant]
  4. ADRIAMYCIN PFS [Concomitant]
  5. CYTOXAN [Concomitant]
  6. RADIATION [Concomitant]
  7. XELODA [Concomitant]
  8. AROMASIN [Concomitant]
  9. VICODIN [Concomitant]
  10. OXYCONTIN [Concomitant]
  11. PRILOSEC [Concomitant]
  12. REGLAN [Concomitant]
  13. AMOXIL ^AYERST LAB^ [Concomitant]
  14. FENTANYL [Concomitant]
  15. NEXIUM [Concomitant]
  16. PROPRANOLOL [Concomitant]
  17. VANCOMYCIN [Concomitant]
  18. LEVOFLOXACIN [Concomitant]
  19. HYDROCODONE [Concomitant]
  20. OXYCODONE [Concomitant]
  21. PROMETHAZINE [Concomitant]
  22. HYDROMORPHONE HCL [Concomitant]
  23. DEXAMETHASONE [Concomitant]
  24. LEVAQUIN [Concomitant]
  25. FLAGYL [Concomitant]
  26. ALDACTONE [Concomitant]
  27. FASLODEX [Concomitant]
  28. PRIMAXIN [Concomitant]

REACTIONS (31)
  - ABDOMINAL PAIN [None]
  - ANAEMIA [None]
  - ANHEDONIA [None]
  - ANXIETY [None]
  - BONE DISORDER [None]
  - CELLULITIS STREPTOCOCCAL [None]
  - DEATH [None]
  - DISCOMFORT [None]
  - EATING DISORDER [None]
  - EMOTIONAL DISTRESS [None]
  - GASTROINTESTINAL HAEMORRHAGE [None]
  - HAEMOPTYSIS [None]
  - HEPATIC CIRRHOSIS [None]
  - INFLUENZA [None]
  - INJURY [None]
  - MALIGNANT NEOPLASM PROGRESSION [None]
  - MASTECTOMY [None]
  - MELAENA [None]
  - METASTASES TO BONE [None]
  - METASTASES TO LIVER [None]
  - OSTEONECROSIS [None]
  - PAIN [None]
  - PERIODONTITIS [None]
  - REFLUX OESOPHAGITIS [None]
  - RESPIRATORY TRACT INFECTION [None]
  - SCAR [None]
  - SINUSITIS [None]
  - TOOTH EXTRACTION [None]
  - TOOTH FRACTURE [None]
  - TOOTHACHE [None]
  - VARICES OESOPHAGEAL [None]
